FAERS Safety Report 5028246-2 (Version None)
Quarter: 2006Q2

REPORT INFORMATION
  Report Type: 
  Country: None (occurrence: None)
  Receive Date: 20060503
  Receipt Date: 20060309
  Transmission Date: 20061013
  Serious: No
  Sender: FDA-Public Use
  Company Number: FACT0600154

PATIENT
  Age: 72 Year
  Sex: Female
  Weight: 68 kg

DRUGS (3)
  1. FACTIVE [Suspect]
     Indication: RESPIRATORY TRACT INFECTION BACTERIAL
     Dosage: 320 MG, QD, ORAL
     Route: 048
     Dates: start: 20060308, end: 20060301
  2. LOTREL [Concomitant]
  3. HYZAAR [Concomitant]

REACTIONS (4)
  - AGEUSIA [None]
  - BREATH SOUNDS ABNORMAL [None]
  - FEELING JITTERY [None]
  - NASAL OEDEMA [None]
